FAERS Safety Report 10562202 (Version 1)
Quarter: 2014Q4

REPORT INFORMATION
  Report Type: Spontaneous
  Country: US (occurrence: None)
  Receive Date: 20141031
  Receipt Date: 20141031
  Transmission Date: 20150529
  Serious: Yes (Other)
  Sender: FDA-Public Use
  Company Number: PC-035-14

PATIENT
  Age: 64 Year
  Sex: Female

DRUGS (5)
  1. NEXIUM [Concomitant]
     Active Substance: ESOMEPRAZOLE MAGNESIUM
  2. LISINOPRIL. [Concomitant]
     Active Substance: LISINOPRIL
  3. POLY IRON [Suspect]
     Active Substance: DIETARY SUPPLEMENT
     Indication: ANAEMIA
     Dosage: 3 CAPSULES/DAY/ORAL
     Route: 048
     Dates: start: 201310, end: 201404
  4. POTASSIUM CHLORIDE. [Concomitant]
     Active Substance: POTASSIUM CHLORIDE
  5. POLY IRON 150 [Concomitant]

REACTIONS (3)
  - Internal haemorrhage [None]
  - Abdominal pain upper [None]
  - Constipation [None]

NARRATIVE: CASE EVENT DATE: 20141028
